FAERS Safety Report 9291097 (Version 1)
Quarter: 2013Q2

REPORT INFORMATION
  Report Type: Report from Study
  Country: US (occurrence: US)
  Receive Date: 20130515
  Receipt Date: 20130515
  Transmission Date: 20140414
  Serious: Yes (Hospitalization)
  Sender: FDA-Public Use
  Company Number: US-PFIZER INC-2013141385

PATIENT
  Age: 85 Year
  Sex: Male

DRUGS (3)
  1. TEMSIROLIMUS [Suspect]
     Indication: HEAD AND NECK CANCER
     Dosage: UNK
     Dates: start: 20130306
  2. CARBOPLATIN [Suspect]
     Indication: HEAD AND NECK CANCER
     Dosage: UNK
     Dates: start: 20130306
  3. TAXOL [Suspect]
     Indication: HEAD AND NECK CANCER
     Dosage: UNK
     Dates: start: 20130306

REACTIONS (1)
  - Muscular weakness [Recovered/Resolved]
